FAERS Safety Report 4469751-7 (Version None)
Quarter: 2004Q3

REPORT INFORMATION
  Report Type: 
  Country: None (occurrence: None)
  Receive Date: 20040920
  Receipt Date: 20040520
  Transmission Date: 20050211
  Serious: Yes (Other)
  Sender: FDA-Public Use
  Company Number: A-US2004-06353

PATIENT
  Age: 67 Year
  Sex: Female

DRUGS (4)
  1. TRACLEER [Suspect]
     Indication: PULMONARY HYPERTENSION
     Dosage: 125 MG, BID, ORAL
     Route: 048
     Dates: start: 20020701
  2. LASIX [Concomitant]
  3. SPIRONOLACTONE [Concomitant]
  4. BETA BLOCKING AGENTS [Concomitant]

REACTIONS (1)
  - OEDEMA PERIPHERAL [None]
